FAERS Safety Report 13026179 (Version 6)
Quarter: 2018Q3

REPORT INFORMATION
  Report Type: Report from Study
  Country: None (occurrence: US)
  Receive Date: 20161214
  Receipt Date: 20180828
  Transmission Date: 20181010
  Serious: Yes (Hospitalization, Other)
  Sender: FDA-Public Use
  Company Number: US-ABBVIE-16K-163-1805512-00

PATIENT
  Age: 44 Year
  Sex: Female
  Weight: 172.52 kg

DRUGS (9)
  1. LOSARTAN POTASSIUM/HYDROCHLOROTHIAZIDE [Concomitant]
     Active Substance: HYDROCHLOROTHIAZIDE\LOSARTAN POTASSIUM
     Indication: HYPERTENSION
  2. DEPO?PROVERA [Concomitant]
     Active Substance: MEDROXYPROGESTERONE ACETATE
     Indication: CONTRACEPTION
  3. ZYRTEC [Concomitant]
     Active Substance: CETIRIZINE HYDROCHLORIDE
     Indication: HYPERSENSITIVITY
  4. JARDIANCE [Concomitant]
     Active Substance: EMPAGLIFLOZIN
     Indication: PRODUCT USED FOR UNKNOWN INDICATION
  5. LEVOTHYROXINE. [Concomitant]
     Active Substance: LEVOTHYROXINE
     Indication: HYPOTHYROIDISM
  6. HUMIRA [Suspect]
     Active Substance: ADALIMUMAB
     Route: 058
     Dates: start: 20180708
  7. BIOTINE [Concomitant]
     Active Substance: LACTOPEROXIDASE BOVINE\LYSOZYME HYDROCHLORIDE
     Indication: HAIR GROWTH ABNORMAL
  8. HUMIRA [Suspect]
     Active Substance: ADALIMUMAB
     Indication: PSORIASIS
     Route: 058
     Dates: start: 20160927, end: 201611
  9. HUMIRA [Suspect]
     Active Substance: ADALIMUMAB
     Route: 058
     Dates: start: 2016, end: 20180513

REACTIONS (12)
  - Myocardial necrosis marker increased [Recovered/Resolved]
  - Joint injury [Recovered/Resolved]
  - Stress [Unknown]
  - Psoriasis [Unknown]
  - Renal vascular thrombosis [Recovered/Resolved]
  - Myocardial strain [Unknown]
  - Thrombosis [Recovered/Resolved]
  - Knee arthroplasty [Unknown]
  - Psoriasis [Recovering/Resolving]
  - Condition aggravated [Recovered/Resolved]
  - Condition aggravated [Unknown]
  - Pulmonary embolism [Recovered/Resolved]

NARRATIVE: CASE EVENT DATE: 2016
